FAERS Safety Report 7920664-5 (Version None)
Quarter: 2011Q4

REPORT INFORMATION
  Report Type: 
  Country: None (occurrence: None)
  Receive Date: 20111117
  Receipt Date: 20111111
  Transmission Date: 20120403
  Serious: Yes (Hospitalization, Other)
  Sender: FDA-Public Use
  Company Number: US-VERTEX PHARMACEUTICALS INC.-AE-2011-003416

PATIENT
  Age: 54 Year
  Sex: Male

DRUGS (4)
  1. RIBAVIRIN [Concomitant]
     Dates: start: 20111111
  2. PEGASYS [Concomitant]
     Indication: HEPATITIS C
     Route: 058
     Dates: start: 20110806
  3. INCIVEK [Suspect]
     Indication: HEPATITIS C
     Route: 048
     Dates: start: 20110806, end: 20111028
  4. RIBAVIRIN [Concomitant]
     Indication: HEPATITIS C

REACTIONS (5)
  - HAEMOGLOBIN DECREASED [None]
  - FEAR [None]
  - STAPHYLOCOCCAL INFECTION [None]
  - ANXIETY [None]
  - FATIGUE [None]
